FAERS Safety Report 14143116 (Version 1)
Quarter: 2017Q4

REPORT INFORMATION
  Report Type: Spontaneous
  Country: US (occurrence: US)
  Receive Date: 20171030
  Receipt Date: 20171030
  Transmission Date: 20180321
  Serious: No
  Sender: FDA-Public Use
  Company Number: US-TEVA-819350ACC

PATIENT
  Sex: Female

DRUGS (1)
  1. PARAGARD T 380A [Suspect]
     Active Substance: COPPER
     Dosage: 10 YEARS COMPLETED AFTER INSERTION
     Dates: start: 200507

REACTIONS (2)
  - Complication associated with device [Unknown]
  - Device breakage [Unknown]
